FAERS Safety Report 9153624 (Version 3)
Quarter: 2013Q1

REPORT INFORMATION
  Report Type: Spontaneous
  Country: IT (occurrence: IT)
  Receive Date: 20130311
  Receipt Date: 20130320
  Transmission Date: 20140127
  Serious: Yes (Hospitalization, Other)
  Sender: FDA-Public Use
  Company Number: PHHY2013IT022446

PATIENT
  Age: 42 Year
  Sex: Male

DRUGS (1)
  1. EXJADE [Suspect]
     Indication: THALASSAEMIA BETA
     Dosage: 25 MG/KG DAILY
     Dates: start: 20120705

REACTIONS (7)
  - Cerebral haemorrhage [Unknown]
  - General physical health deterioration [Unknown]
  - Pancreatitis [Unknown]
  - Abdominal pain [Unknown]
  - Cholelithiasis [Unknown]
  - Hemiplegia [Recovering/Resolving]
  - Aphasia [Recovering/Resolving]
